FAERS Safety Report 4632180-7 (Version None)
Quarter: 2005Q2

REPORT INFORMATION
  Report Type: 
  Country: None (occurrence: None)
  Receive Date: 20050401
  Receipt Date: 20041109
  Transmission Date: 20051028
  Serious: Yes (Hospitalization)
  Sender: FDA-Public Use
  Company Number: 04P-163-0279828-00

PATIENT
  Age: 22 Year
  Sex: Male
  Weight: 113.6 kg

DRUGS (2)
  1. DEPAKOTE [Suspect]
     Indication: BIPOLAR DISORDER
     Dates: start: 19980101, end: 20020101
  2. FLUVOXAMINE MALEATE [Concomitant]

REACTIONS (1)
  - PLATELET COUNT DECREASED [None]
